FAERS Safety Report 7236758-6 (Version None)
Quarter: 2011Q1

REPORT INFORMATION
  Report Type: 
  Country: None (occurrence: None)
  Receive Date: 20110120
  Receipt Date: 20110117
  Transmission Date: 20110831
  Serious: Yes (Other)
  Sender: FDA-Public Use
  Company Number: DE-PFIZER INC-2010168682

PATIENT
  Age: 75 Year
  Sex: Male

DRUGS (2)
  1. TORASEMIDE [Concomitant]
  2. INSPRA [Suspect]
     Indication: MYOCARDIAL INFARCTION
     Dosage: 25 MG, UNK

REACTIONS (1)
  - HYPERKALAEMIA [None]
